FAERS Safety Report 8793280 (Version 1)
Quarter: 2012Q4

REPORT INFORMATION
  Report Type: 
  Country: RO (occurrence: RO)
  Receive Date: 20120918
  Receipt Date: 20120918
  Transmission Date: 20130627
  Serious: Yes (Other)
  Sender: FDA-Public Use
  Company Number: RO-BRISTOL-MYERS SQUIBB COMPANY-16855561

PATIENT
  Age: 51 Year
  Sex: Male

DRUGS (1)
  1. ENTECAVIR [Suspect]
     Indication: HEPATITIS B
     Dosage: 6 month ago
Interrupted on 30Aug12
Duration:6 months
     Route: 048
     Dates: start: 20120312

REACTIONS (2)
  - Viral load increased [Unknown]
  - Hepatic cirrhosis [Unknown]
